FAERS Safety Report 14531323 (Version 1)
Quarter: 2018Q1

REPORT INFORMATION
  Report Type: Spontaneous
  Country: US (occurrence: US)
  Receive Date: 20180213
  Receipt Date: 20180213
  Transmission Date: 20180509
  Serious: Yes (Other)
  Sender: FDA-Public Use
  Company Number: None

PATIENT
  Age: 7 Year
  Sex: Male
  Weight: 23.85 kg

DRUGS (2)
  1. TAMIFLU [Suspect]
     Active Substance: OSELTAMIVIR PHOSPHATE
     Indication: INFLUENZA
     Dates: start: 20180207, end: 20180207
  2. MVI [Concomitant]
     Active Substance: VITAMINS

REACTIONS (4)
  - Abnormal behaviour [None]
  - Feeling abnormal [None]
  - Inappropriate affect [None]
  - Hallucination, auditory [None]

NARRATIVE: CASE EVENT DATE: 20180208
